FAERS Safety Report 8165375 (Version 2)
Quarter: 2013Q4

REPORT INFORMATION
  Report Type: Spontaneous
  Country: US (occurrence: US)
  Receive Date: 20111003
  Receipt Date: 20131125
  Transmission Date: 20140711
  Serious: Yes (Hospitalization)
  Sender: FDA-Public Use
  Company Number: US-JNJFOC-20110910785

PATIENT
  Age: 60 Year
  Sex: Female
  Weight: 85.73 kg

DRUGS (4)
  1. DURAGESIC [Suspect]
     Indication: RHEUMATOID ARTHRITIS
     Dosage: 100 UG/HR 2 EVERY 48 HOUR
     Route: 062
     Dates: start: 2009
  2. PERCOCET [Concomitant]
     Indication: PAIN
     Dosage: 5/325MG TABLET/5 325MG /2??EVERY 4 HOURS AS NEEDED
     Route: 048
  3. NEXIUM [Concomitant]
     Indication: GASTROOESOPHAGEAL REFLUX DISEASE
     Dosage: 5/325MG TABLET/5 325MG /2??EVERY 4 HOURS AS NEEDED
     Route: 048
     Dates: start: 2006, end: 2011
  4. NEXIUM [Concomitant]
     Indication: HERNIA
     Dosage: 5/325MG TABLET/5 325MG /2??EVERY 4 HOURS AS NEEDED
     Route: 048
     Dates: start: 2006, end: 2011

REACTIONS (9)
  - Intestinal haemorrhage [Not Recovered/Not Resolved]
  - Electrolyte depletion [Unknown]
  - Blood potassium decreased [Unknown]
  - Product quality issue [Unknown]
  - Drug effect decreased [Not Recovered/Not Resolved]
  - Hypokinesia [Not Recovered/Not Resolved]
  - Weight decreased [Not Recovered/Not Resolved]
  - Migraine [Not Recovered/Not Resolved]
  - Sensory disturbance [Not Recovered/Not Resolved]
